FAERS Safety Report 5782771-5 (Version None)
Quarter: 2008Q2

REPORT INFORMATION
  Report Type: 
  Country: None (occurrence: None)
  Receive Date: 20080624
  Receipt Date: 20080314
  Transmission Date: 20081010
  Serious: No
  Sender: FDA-Public Use
  Company Number: US-BAYER-200817272NA

PATIENT
  Age: 55 Year
  Sex: Female
  Weight: 50 kg

DRUGS (7)
  1. CLIMARA [Suspect]
     Indication: HORMONE REPLACEMENT THERAPY
     Route: 062
  2. PROMETRIUM [Suspect]
     Indication: HORMONE REPLACEMENT THERAPY
     Dates: start: 20070925, end: 20080223
  3. PROMETRIUM [Suspect]
     Dates: start: 20070223
  4. DEMEROL [Concomitant]
  5. BACLOFEN [Concomitant]
  6. TRILEPTAL [Concomitant]
  7. SOMA [Concomitant]

REACTIONS (1)
  - HEADACHE [None]
